FAERS Safety Report 23932576 (Version 1)
Quarter: 2024Q2

REPORT INFORMATION
  Report Type: Spontaneous
  Country: US (occurrence: US)
  Receive Date: 20240603
  Receipt Date: 20240603
  Transmission Date: 20240715
  Serious: No
  Sender: FDA-Public Use
  Company Number: US-009507513-2405USA008056

PATIENT
  Age: 12 Year
  Sex: Male

DRUGS (1)
  1. KEYTRUDA [Suspect]
     Active Substance: PEMBROLIZUMAB
     Indication: Hepatocellular carcinoma
     Dosage: 2MG/KG, MAXIMUM 200 MG, Q3W, 7 CYCLES

REACTIONS (3)
  - Hypertransaminasaemia [Unknown]
  - Diarrhoea [Unknown]
  - Off label use [Unknown]
